FAERS Safety Report 20513415 (Version 1)
Quarter: 2022Q1

REPORT INFORMATION
  Report Type: Spontaneous
  Country: US (occurrence: US)
  Receive Date: 20220224
  Receipt Date: 20220224
  Transmission Date: 20220424
  Serious: No
  Sender: FDA-Public Use
  Company Number: US-AMNEAL PHARMACEUTICALS-2021-AMRX-03525

PATIENT
  Sex: Female

DRUGS (1)
  1. RYTARY [Suspect]
     Active Substance: CARBIDOPA\LEVODOPA
     Indication: Product used for unknown indication
     Dosage: 7 CAPSULES, DAILY, 2 CAPS AT 7AM, 11AM, 4PM AND 1 CAP AT BEDTIME
     Route: 048

REACTIONS (3)
  - Pruritus [Unknown]
  - Vomiting [Unknown]
  - Nausea [Unknown]
